FAERS Safety Report 4725503-1 (Version None)
Quarter: 2005Q3

REPORT INFORMATION
  Report Type: 
  Country: None (occurrence: None)
  Receive Date: 20050727
  Receipt Date: 20050715
  Transmission Date: 20060218
  Serious: Yes (Other)
  Sender: FDA-Public Use
  Company Number: US-JNJFOC-20050605515

PATIENT
  Sex: Male
  Weight: 83.01 kg

DRUGS (4)
  1. REMICADE [Suspect]
     Indication: RHEUMATOID ARTHRITIS
     Route: 042
  2. ARAVA [Concomitant]
  3. PREDNISONE [Concomitant]
  4. FORTEO [Concomitant]

REACTIONS (1)
  - LUPUS-LIKE SYNDROME [None]
